FAERS Safety Report 18632470 (Version 2)
Quarter: 2020Q4

REPORT INFORMATION
  Report Type: Spontaneous
  Country: AU (occurrence: AU)
  Receive Date: 20201218
  Receipt Date: 20201228
  Transmission Date: 20210114
  Serious: Yes (Death, Life-Threatening, Other)
  Sender: FDA-Public Use
  Company Number: AU-BAUSCH-BL-2020-035724

PATIENT
  Age: 35 Year
  Sex: Male

DRUGS (13)
  1. CLOPINE [Suspect]
     Active Substance: CLOZAPINE
     Route: 065
     Dates: start: 200408
  2. THYROXINE [Suspect]
     Active Substance: LEVOTHYROXINE
     Indication: MENTAL DISORDER
     Route: 065
  3. CLONAZEPAM. [Suspect]
     Active Substance: CLONAZEPAM
     Indication: MENTAL DISORDER
     Route: 065
  4. LITHIUM CARBONATE. [Suspect]
     Active Substance: LITHIUM CARBONATE
     Indication: MENTAL DISORDER
     Route: 065
  5. PERINDOPRIL [Suspect]
     Active Substance: PERINDOPRIL
     Indication: MENTAL DISORDER
     Route: 065
  6. ATROPINE. [Suspect]
     Active Substance: ATROPINE
     Indication: PRODUCT USED FOR UNKNOWN INDICATION
     Route: 065
  7. LEVETIRACETAM. [Suspect]
     Active Substance: LEVETIRACETAM
     Indication: MENTAL DISORDER
     Route: 065
  8. HYOSCINE [Suspect]
     Active Substance: SCOPOLAMINE
     Indication: MENTAL DISORDER
     Route: 065
  9. CLOPINE [Suspect]
     Active Substance: CLOZAPINE
     Indication: MENTAL DISORDER
     Route: 065
     Dates: start: 2002
  10. CLOPINE [Suspect]
     Active Substance: CLOZAPINE
     Route: 065
     Dates: start: 2007
  11. CLOPINE [Suspect]
     Active Substance: CLOZAPINE
     Route: 065
     Dates: start: 2010
  12. CLOPINE [Suspect]
     Active Substance: CLOZAPINE
     Route: 065
     Dates: start: 20130527, end: 20140424
  13. CLOPINE [Suspect]
     Active Substance: CLOZAPINE
     Dosage: REMAINED ON CLOZAPINE UNTIL OCT/2011
     Route: 065
     Dates: start: 201103, end: 201110

REACTIONS (5)
  - Gastrointestinal hypomotility [Fatal]
  - Large intestinal obstruction [Fatal]
  - Myocarditis [Unknown]
  - Agranulocytosis [Unknown]
  - Aspiration [Fatal]
